FAERS Safety Report 9805501 (Version 1)
Quarter: 2014Q1

REPORT INFORMATION
  Report Type: Spontaneous
  Country: US (occurrence: US)
  Receive Date: 20140109
  Receipt Date: 20140109
  Transmission Date: 20141002
  Serious: Yes (Death, Other)
  Sender: FDA-Public Use
  Company Number: US-UCBSA-108459

PATIENT
  Age: 74 Year
  Sex: Male

DRUGS (10)
  1. OMEPRAZOLE [Suspect]
  2. DILTIAZEM [Suspect]
     Dosage: EXTENDED RELEASE
  3. ATENOLOL [Suspect]
  4. GLIPIZIDE [Suspect]
  5. FLUOXETINE [Suspect]
  6. HYDROCHLOROTHIAZIDE [Suspect]
  7. LISINOPRIL [Suspect]
  8. METFORMIN [Suspect]
  9. PIOGLITAZONE [Suspect]
  10. ROVUSTATIN [Suspect]

REACTIONS (1)
  - Completed suicide [Fatal]
